FAERS Safety Report 10183276 (Version 1)
Quarter: 2014Q2

REPORT INFORMATION
  Report Type: Spontaneous
  Country: LB (occurrence: None)
  Receive Date: 20140516
  Receipt Date: 20140516
  Transmission Date: 20141212
  Serious: Yes (Other)
  Sender: FDA-Public Use
  Company Number: 2014P1003939

PATIENT
  Age: 29 Year
  Sex: Female
  Weight: 56 kg

DRUGS (4)
  1. AMOXICILLIN + CLAVULANATE POTASSIUM [Suspect]
     Indication: PROPHYLAXIS
     Route: 048
     Dates: start: 20140406, end: 20140411
  2. AMOXICILLIN + CLAVULANATE POTASSIUM [Suspect]
     Indication: POSTOPERATIVE CARE
     Route: 048
     Dates: start: 20140406, end: 20140411
  3. DORIXINA /00729301/ [Concomitant]
  4. EUTHYROX [Concomitant]

REACTIONS (6)
  - Pyrexia [None]
  - Diarrhoea [None]
  - Vomiting [None]
  - Angina pectoris [None]
  - Abdominal rigidity [None]
  - Chest pain [None]
